FAERS Safety Report 17487436 (Version 1)
Quarter: 2020Q1

REPORT INFORMATION
  Report Type: Spontaneous
  Country: US (occurrence: US)
  Receive Date: 20200303
  Receipt Date: 20200303
  Transmission Date: 20200409
  Serious: No
  Sender: FDA-Public Use
  Company Number: US-SCIEGEN PHARMACEUTICALS INC-2020SCISPO00057

PATIENT

DRUGS (1)
  1. GABAPENTIN TABLETS [Suspect]
     Active Substance: GABAPENTIN

REACTIONS (2)
  - Drug ineffective [Unknown]
  - Malaise [Unknown]
